FAERS Safety Report 21105834 (Version 5)
Quarter: 2022Q4

REPORT INFORMATION
  Report Type: Spontaneous
  Country: US (occurrence: US)
  Receive Date: 20220720
  Receipt Date: 20221212
  Transmission Date: 20230113
  Serious: No
  Sender: FDA-Public Use
  Company Number: US-ViiV Healthcare Limited-82426

PATIENT
  Sex: Female
  Weight: 78.458 kg

DRUGS (5)
  1. CABENUVA [Suspect]
     Active Substance: CABOTEGRAVIR\RILPIVIRINE
     Indication: HIV infection
     Dosage: UNK, UNK, Z, 600/900 MG, 2M
     Route: 030
     Dates: start: 20220414
  2. CABENUVA [Suspect]
     Active Substance: CABOTEGRAVIR\RILPIVIRINE
     Dosage: UNK, UNK, Z, 600/900 MG, 2M
     Route: 030
     Dates: start: 20220511
  3. CABENUVA [Suspect]
     Active Substance: CABOTEGRAVIR\RILPIVIRINE
     Dosage: UNK, UNK, Z, 600/900 MG, 2M
     Route: 030
     Dates: start: 20220711, end: 2022
  4. VOCABRIA [Suspect]
     Active Substance: CABOTEGRAVIR SODIUM
     Indication: Product used for unknown indication
     Dosage: UNK
     Route: 048
  5. EDURANT [Suspect]
     Active Substance: RILPIVIRINE HYDROCHLORIDE
     Indication: Product used for unknown indication
     Dosage: UNK
     Route: 048

REACTIONS (10)
  - Exposure via skin contact [Recovered/Resolved]
  - Injection site nodule [Recovering/Resolving]
  - Nodule [Recovering/Resolving]
  - Agitation [Unknown]
  - Skin wound [Recovering/Resolving]
  - Secretion discharge [Recovering/Resolving]
  - Underdose [Unknown]
  - Accidental exposure to product [Recovered/Resolved]
  - Inappropriate schedule of product administration [Recovered/Resolved]
  - Product complaint [Recovered/Resolved]

NARRATIVE: CASE EVENT DATE: 20220101
